FAERS Safety Report 10164421 (Version 2)
Quarter: 2014Q2

REPORT INFORMATION
  Report Type: Spontaneous
  Country: US (occurrence: US)
  Receive Date: 20140510
  Receipt Date: 20140510
  Transmission Date: 20141212
  Serious: No
  Sender: FDA-Public Use
  Company Number: US200712000218

PATIENT
  Age: 52 Year
  Sex: Female
  Weight: 82.54 kg

DRUGS (5)
  1. BYETTA PEN DISPOSABLE [Suspect]
     Route: 058
     Dates: start: 200705, end: 2007
  2. BYETTA PEN DISPOSABLE [Suspect]
     Dosage: APR15:EXP DATE
     Route: 058
     Dates: start: 2007
  3. EXENATIDE 5MCG PEN, DISPOSABLE DEVICE [Concomitant]
  4. EXENATIDE 10MCG PEN, DISPOSABLE DEVICE [Concomitant]
  5. SYNTHROID [Concomitant]

REACTIONS (2)
  - Injection site extravasation [Not Recovered/Not Resolved]
  - Nausea [Unknown]
